FAERS Safety Report 6015242-1 (Version None)
Quarter: 2008Q4

REPORT INFORMATION
  Report Type: 
  Country: None (occurrence: None)
  Receive Date: 20081219
  Receipt Date: 20081219
  Transmission Date: 20090506
  Serious: Yes (Hospitalization)
  Sender: FDA-Public Use
  Company Number: None

PATIENT
  Sex: Female
  Weight: 71.6683 kg

DRUGS (4)
  1. QUETIAPINE FUMARATE [Suspect]
     Indication: BIPOLAR DISORDER
     Dosage: 400MG  DAILY-HS PO
     Route: 048
     Dates: start: 20080912, end: 20080914
  2. QUETIAPINE FUMARATE [Suspect]
     Indication: MOOD ALTERED
     Dosage: 400MG  DAILY-HS PO
     Route: 048
     Dates: start: 20080912, end: 20080914
  3. BACTRIM [Concomitant]
  4. POTASSIUM CHLORIDE [Concomitant]

REACTIONS (9)
  - BLOOD PRESSURE SYSTOLIC INCREASED [None]
  - FALL [None]
  - HYPERHIDROSIS [None]
  - OXYGEN SATURATION DECREASED [None]
  - PALLOR [None]
  - PUPILLARY REFLEX IMPAIRED [None]
  - RESPIRATORY RATE DECREASED [None]
  - SYNCOPE [None]
  - UNRESPONSIVE TO STIMULI [None]
